FAERS Safety Report 12643524 (Version 2)
Quarter: 2016Q3

REPORT INFORMATION
  Report Type: Spontaneous
  Country: IT (occurrence: IT)
  Receive Date: 20160811
  Receipt Date: 20160908
  Transmission Date: 20161109
  Serious: Yes (Hospitalization)
  Sender: FDA-Public Use
  Company Number: IT-ASTRAZENECA-2016SE73671

PATIENT
  Age: 616 Month
  Sex: Female

DRUGS (17)
  1. LYNPARZA [Suspect]
     Active Substance: OLAPARIB
     Indication: OVARIAN CANCER
     Route: 048
     Dates: start: 20160528, end: 20160704
  2. ALMARYTM [Concomitant]
     Active Substance: FLECAINIDE ACETATE
     Dosage: 1/4 TABLET, 3 TIMES/DAY
     Route: 048
  3. LYNPARZA [Suspect]
     Active Substance: OLAPARIB
     Indication: OVARIAN CANCER
     Route: 048
  4. CYCLIC PROBIOTICS [Concomitant]
     Dosage: 1 TABLET /DAILY FOR 7 DAYS /MONTH
     Route: 048
  5. POTASSIUM [Concomitant]
     Active Substance: POTASSIUM
     Route: 042
  6. POTASSIUM [Concomitant]
     Active Substance: POTASSIUM
     Route: 048
  7. PROTON PUMP INHIBITORS [Concomitant]
     Active Substance: UNSPECIFIED INGREDIENT
     Route: 050
  8. CARDIOASPIRIN [Concomitant]
     Active Substance: ASPIRIN
     Dosage: 100MG, 1 TABLET AT 12AM UNTIL 26-OCT-2016
     Route: 048
  9. ALMARYTM [Concomitant]
     Active Substance: FLECAINIDE ACETATE
     Indication: CARDIAC DISORDER
     Dosage: 100 MG, ??? TABLET 3 TIMES/DAY (AT 08-14-20)
     Route: 048
  10. CHOLESTYRAMINE. [Concomitant]
     Active Substance: CHOLESTYRAMINE
  11. CARDIOASPIRIN [Concomitant]
     Active Substance: ASPIRIN
     Dosage: 1 TABLET / DAILY WITH FOOD FOR 3 MONTHS
     Route: 048
  12. FLAGYL [Concomitant]
     Active Substance: METRONIDAZOLE\METRONIDAZOLE HYDROCHLORIDE
     Dosage: 250 MG 2 TABLET X 3 /DAILY (AT 08-14-20) FOR OTHER 7 DAYS, THEN TO BE STOPPED
     Route: 048
  13. CLINIMIX [Concomitant]
     Active Substance: ALANINE\ARGININE\DEXTROSE\GLYCINE\HISTIDINE\ISOLEUCINE\LEUCINE\LYSINE\METHIONINE\PHENYLALANINE\PROLINE\SERINE\THREONINE\TRYPTOPHAN\TYROSINE\VALINE
  14. METRONIDAZOLE. [Concomitant]
     Active Substance: METRONIDAZOLE
     Dosage: 250 MG 2 TABLET X 3 /DAILY (AT 08-14-20) FOR OTHER 7 DAYS, THEN TO BE STOPPED
     Route: 002
  15. PANTOPRAZOLE [Concomitant]
     Active Substance: PANTOPRAZOLE SODIUM
     Indication: PROPHYLAXIS
     Dosage: 20MG, 1 TABLET DAILY AT 08 AM
     Route: 048
  16. LEVOSULPRIDE [Concomitant]
     Active Substance: LEVOSULPIRIDE
     Dosage: 15 DROPS DURING MEALS FOR 1 MONTH
  17. LEVOSULPRIDE [Concomitant]
     Active Substance: LEVOSULPIRIDE
     Dosage: 15 DROPS DURING MEALS FOR 1 MONTH

REACTIONS (8)
  - Diarrhoea [Unknown]
  - Pericardial effusion [Unknown]
  - Abdominal distension [Unknown]
  - Metastases to lymph nodes [Unknown]
  - Anaemia [Unknown]
  - Pleural effusion [Unknown]
  - Supraventricular tachycardia [Unknown]
  - Gastrointestinal candidiasis [Unknown]

NARRATIVE: CASE EVENT DATE: 201505
